FAERS Safety Report 14738217 (Version 1)
Quarter: 2018Q2

REPORT INFORMATION
  Report Type: Spontaneous
  Country: US (occurrence: US)
  Receive Date: 20180409
  Receipt Date: 20180409
  Transmission Date: 20180711
  Serious: No
  Sender: FDA-Public Use
  Company Number: US-MERZ NORTH AMERICA, INC.-18MRZ-00149

PATIENT
  Sex: Female

DRUGS (2)
  1. ASCLERA [Suspect]
     Active Substance: POLIDOCANOL
     Indication: SPIDER VEIN
     Dosage: UNKNOWN
     Route: 042
     Dates: start: 20180403, end: 20180403
  2. ASCLERA [Suspect]
     Active Substance: POLIDOCANOL
     Indication: VARICOSE VEIN

REACTIONS (4)
  - Injection site bruising [Unknown]
  - Pruritus [Recovering/Resolving]
  - Pain [Recovering/Resolving]
  - Paraesthesia [Recovering/Resolving]

NARRATIVE: CASE EVENT DATE: 20180404
